FAERS Safety Report 4365336-1 (Version None)
Quarter: 2004Q2

REPORT INFORMATION
  Report Type: 
  Country: None (occurrence: None)
  Receive Date: 20040520
  Receipt Date: 20040506
  Transmission Date: 20050107
  Serious: Yes (Hospitalization, Disabling)
  Sender: FDA-Public Use
  Company Number: 02P-163-0200698-00

PATIENT
  Sex: Female

DRUGS (45)
  1. VICODIN ES [Suspect]
     Indication: CERVICOBRACHIAL SYNDROME
     Dosage: AS REQUIRED, PER ORAL
     Route: 048
     Dates: start: 19971208, end: 20020522
  2. VICODIN ES [Suspect]
     Indication: CERVICOBRACHIAL SYNDROME
     Dosage: AS REQUIRED, PER ORAL
     Route: 048
     Dates: start: 20020607, end: 20030125
  3. VICODIN ES [Suspect]
     Indication: CERVICOBRACHIAL SYNDROME
     Dosage: AS REQUIRED, PER ORAL
     Route: 048
     Dates: start: 20030709, end: 20030722
  4. VICODIN ES [Suspect]
     Indication: CERVICOBRACHIAL SYNDROME
     Dosage: AS REQUIRED, PER ORAL
     Route: 048
     Dates: start: 20030808
  5. CELECOXIB [Suspect]
     Indication: OSTEOARTHRITIS
     Dates: start: 19990302, end: 19990322
  6. CELECOXIB [Suspect]
     Indication: OSTEOARTHRITIS
     Dates: start: 19991019, end: 20010106
  7. SERTRALINE HYDROCHLORIDE [Concomitant]
  8. TRAMADOL HYDROCHLORIDE [Concomitant]
  9. FLUOXETINE HYDROCHLORIDE [Concomitant]
  10. MULTIVITAMIN [Concomitant]
  11. FOLIC ACID [Concomitant]
  12. LANSOPRAZOLE [Concomitant]
  13. VHC [Concomitant]
  14. PAROXETINE HYDROCHLORIDE [Concomitant]
  15. RANITIDINE HYDROCHLORIDE [Concomitant]
  16. VICOPROFEN [Concomitant]
  17. CLOPIDOGREL BISULFATE [Concomitant]
  18. LACTULOSE [Concomitant]
  19. OXYCODONE HCL [Concomitant]
  20. AMITRIPTYLINE HYDROCHLORIDE [Concomitant]
  21. BUSPIRONE HCL [Concomitant]
  22. CEFADROXIL [Concomitant]
  23. PSEUDOEPHEDRINE HYDROCHLORIDE [Concomitant]
  24. METHYLPREDNISOLONE [Concomitant]
  25. ESOMEPRAZOLE [Concomitant]
  26. IBUPROFEN [Concomitant]
  27. FOLATE [Concomitant]
  28. SUCRALFATE [Concomitant]
  29. NADOLOL [Concomitant]
  30. LORAZEPAM [Concomitant]
  31. FENTANYL [Concomitant]
  32. FENTANYL CITRATE [Concomitant]
  33. PROPOXY HYDROCHLORIDE [Concomitant]
  34. LORTAB [Concomitant]
  35. OXYCOCET [Concomitant]
  36. OMEPRAZOLE [Concomitant]
  37. DIAZEPAM [Concomitant]
  38. CEFUROXIME AXETIL [Concomitant]
  39. LORATADINE [Concomitant]
  40. SULFADIAZINE [Concomitant]
  41. FUROSEMIDE [Concomitant]
  42. ISOMAX [Concomitant]
  43. LEVOFLOXACIN [Concomitant]
  44. HUMABID [Concomitant]
  45. ACETAMINOPHEN W/ CODEINE [Concomitant]

REACTIONS (45)
  - ANAEMIA [None]
  - ANXIETY [None]
  - ARTHRALGIA [None]
  - ARTHRITIS [None]
  - ASTHENIA [None]
  - BLOOD DISORDER [None]
  - CELLULITIS [None]
  - COMA [None]
  - CONFUSIONAL STATE [None]
  - CONJUNCTIVITIS [None]
  - DEPENDENCE [None]
  - DIZZINESS [None]
  - DRUG ABUSER [None]
  - FAECES DISCOLOURED [None]
  - FALL [None]
  - GASTRITIS [None]
  - GASTROINTESTINAL HAEMORRHAGE [None]
  - HAEMATEMESIS [None]
  - HEPATIC CIRRHOSIS [None]
  - HIATUS HERNIA [None]
  - HYPERSPLENISM ACQUIRED [None]
  - HYPOVOLAEMIC SHOCK [None]
  - JOINT DISLOCATION [None]
  - JOINT EFFUSION [None]
  - JOINT RANGE OF MOTION DECREASED [None]
  - JOINT SPRAIN [None]
  - LIVER DISORDER [None]
  - MENISCUS LESION [None]
  - MYALGIA [None]
  - OEDEMA PERIPHERAL [None]
  - OSTEOARTHRITIS [None]
  - OSTEOPENIA [None]
  - OTOTOXICITY [None]
  - PAIN [None]
  - PAIN IN EXTREMITY [None]
  - PHLEBITIS [None]
  - PORTAL HYPERTENSION [None]
  - RECTAL HAEMORRHAGE [None]
  - SCRATCH [None]
  - SENSATION OF PRESSURE IN EAR [None]
  - SINUSITIS [None]
  - SUDDEN HEARING LOSS [None]
  - THROMBOCYTOPENIA [None]
  - VARICOSE VEIN [None]
  - VENOUS INSUFFICIENCY [None]
